FAERS Safety Report 6723980-8 (Version None)
Quarter: 2010Q2

REPORT INFORMATION
  Report Type: 
  Country: None (occurrence: None)
  Receive Date: 20100513
  Receipt Date: 20100419
  Transmission Date: 20101027
  Serious: No
  Sender: FDA-Public Use
  Company Number: US-ROCHE-687363

PATIENT
  Sex: Female

DRUGS (1)
  1. TAMIFLU [Suspect]
     Indication: INFLUENZA
     Dosage: FORM: LIQUID
     Route: 048
     Dates: start: 20091201

REACTIONS (2)
  - PRODUCT QUALITY ISSUE [None]
  - VOMITING [None]
